FAERS Safety Report 8722393 (Version 2)
Quarter: 2013Q4

REPORT INFORMATION
  Report Type: Spontaneous
  Country: US (occurrence: US)
  Receive Date: 20120814
  Receipt Date: 20131101
  Transmission Date: 20140711
  Serious: No
  Sender: FDA-Public Use
  Company Number: US-009507513-1208USA000495

PATIENT
  Sex: Female

DRUGS (6)
  1. EMEND [Suspect]
     Indication: PROPHYLAXIS OF NAUSEA AND VOMITING
     Dosage: 150 MG, ONCE
     Route: 042
  2. ADRIAMYCIN [Concomitant]
  3. CISPLATIN [Concomitant]
  4. DEXAMETHASONE [Concomitant]
     Dosage: 12 MG, UNK
     Route: 042
  5. DEXAMETHASONE [Concomitant]
     Dosage: 8 MG, CYCLICAL
     Route: 048
  6. ONDANSETRON [Concomitant]
     Dosage: 15 MG/KG, UNK

REACTIONS (1)
  - Nausea [Unknown]
